FAERS Safety Report 14673388 (Version 1)
Quarter: 2018Q1

REPORT INFORMATION
  Report Type: Spontaneous
  Country: US (occurrence: US)
  Receive Date: 20180323
  Receipt Date: 20180323
  Transmission Date: 20180509
  Serious: Yes (Hospitalization)
  Sender: FDA-Public Use
  Company Number: US-ASTELLAS-2017US036257

PATIENT
  Sex: Male

DRUGS (3)
  1. XTANDI [Suspect]
     Active Substance: ENZALUTAMIDE
     Route: 065
     Dates: start: 201711
  2. XTANDI [Suspect]
     Active Substance: ENZALUTAMIDE
     Route: 048
  3. XTANDI [Suspect]
     Active Substance: ENZALUTAMIDE
     Indication: PROSTATE CANCER
     Dosage: 160 MG, ONCE DAILY (4X40 MG)
     Route: 048
     Dates: start: 20170804

REACTIONS (6)
  - Oedema peripheral [Unknown]
  - Cardiac failure congestive [Unknown]
  - Fatigue [Unknown]
  - Fluid retention [Unknown]
  - Dyspnoea [Unknown]
  - Hot flush [Unknown]
